FAERS Safety Report 6916368-8 (Version None)
Quarter: 2010Q3

REPORT INFORMATION
  Report Type: 
  Country: None (occurrence: None)
  Receive Date: 20100805
  Receipt Date: 20100721
  Transmission Date: 20110219
  Serious: Yes (Hospitalization)
  Sender: FDA-Public Use
  Company Number: DSJ-2010-12045

PATIENT
  Sex: Male

DRUGS (3)
  1. OLMESARTAN MEDOXOMIL [Suspect]
     Indication: PRODUCT USED FOR UNKNOWN INDICATION
     Dosage: PER ORAL
     Route: 048
  2. PANLACMIN [Concomitant]
  3. LOXOPROFEN (LOXOPROFEN) (LOXOPROFEN) [Concomitant]

REACTIONS (3)
  - BLISTER [None]
  - COMPRESSION FRACTURE [None]
  - IMPAIRED HEALING [None]
